FAERS Safety Report 16770388 (Version 1)
Quarter: 2019Q3

REPORT INFORMATION
  Report Type: Spontaneous
  Country: US (occurrence: US)
  Receive Date: 20190904
  Receipt Date: 20190904
  Transmission Date: 20191005
  Serious: Yes (Hospitalization)
  Sender: FDA-Public Use
  Company Number: US-SUN PHARMACEUTICAL INDUSTRIES LTD-2019R1-216957

PATIENT
  Sex: Female

DRUGS (2)
  1. AMBRISENTAN [Suspect]
     Active Substance: AMBRISENTAN
     Indication: PRODUCT USED FOR UNKNOWN INDICATION
     Dosage: 5 MILLIGRAM, QD
     Route: 048
     Dates: start: 20190703
  2. AMBRISENTAN [Suspect]
     Active Substance: AMBRISENTAN
     Dosage: 5 MILLIGRAM, QD
     Route: 048
     Dates: start: 20190613

REACTIONS (9)
  - Pneumonia [Unknown]
  - Sinus pain [Unknown]
  - Atrial fibrillation [Unknown]
  - Unresponsive to stimuli [Unknown]
  - Blood pressure fluctuation [Unknown]
  - Cardiac failure congestive [Unknown]
  - Dizziness [Unknown]
  - Chronic obstructive pulmonary disease [Unknown]
  - Viral infection [Unknown]

NARRATIVE: CASE EVENT DATE: 2019
